FAERS Safety Report 9093405 (Version 1)
Quarter: 2013Q1

REPORT INFORMATION
  Report Type: Spontaneous
  Country: US (occurrence: None)
  Receive Date: 20130213
  Receipt Date: 20130213
  Transmission Date: 20140127
  Serious: Yes (Life-Threatening, Hospitalization, Disabling)
  Sender: FDA-Public Use
  Company Number: None

PATIENT
  Age: 54 Year
  Sex: Female
  Weight: 92.08 kg

DRUGS (2)
  1. AZITHROMYCIN [Suspect]
     Indication: BRONCHITIS
     Route: 048
     Dates: start: 20130115, end: 20130115
  2. AZITHROMYCIN [Suspect]
     Route: 048
     Dates: start: 20130115, end: 20130115

REACTIONS (3)
  - Dizziness [None]
  - Fall [None]
  - Cardiac arrest [None]
